FAERS Safety Report 14065107 (Version 2)
Quarter: 2018Q2

REPORT INFORMATION
  Report Type: Spontaneous
  Country: US (occurrence: US)
  Receive Date: 20171009
  Receipt Date: 20180425
  Transmission Date: 20180711
  Serious: No
  Sender: FDA-Public Use
  Company Number: US-PFIZER INC-2017428370

PATIENT
  Age: 87 Year
  Sex: Female

DRUGS (9)
  1. RUFEN [Suspect]
     Active Substance: IBUPROFEN
     Dosage: UNK
  2. LODINE [Suspect]
     Active Substance: ETODOLAC
     Dosage: UNK
  3. LOPEBERIN [Suspect]
     Active Substance: BERBERINE CHLORIDE\ENTEROCOCCUS FAECALIS\ETHACRIDINE LACTATE\LOPERAMIDE HYDROCHLORIDE
     Dosage: UNK
  4. BIAXIN [Suspect]
     Active Substance: CLARITHROMYCIN
     Dosage: UNK
  5. HYDROCODONE [Suspect]
     Active Substance: HYDROCODONE
     Dosage: UNK
  6. VANTIN [Suspect]
     Active Substance: CEFPODOXIME PROXETIL
     Dosage: UNK
  7. CLINORIL [Suspect]
     Active Substance: SULINDAC
     Dosage: UNK
  8. ZITHROMAX [Suspect]
     Active Substance: AZITHROMYCIN DIHYDRATE
     Dosage: UNK
  9. ORUVAIL [Suspect]
     Active Substance: KETOPROFEN
     Dosage: UNK

REACTIONS (1)
  - Gastrointestinal disorder [Unknown]
